FAERS Safety Report 5805404-8 (Version None)
Quarter: 2008Q3

REPORT INFORMATION
  Report Type: 
  Country: None (occurrence: None)
  Receive Date: 20080709
  Receipt Date: 20080709
  Transmission Date: 20090109
  Serious: Yes (Death)
  Sender: FDA-Public Use
  Company Number: None

PATIENT
  Sex: Female
  Weight: 48.9885 kg

DRUGS (1)
  1. DIGITEK; 250 MCG; MYLAN PHARMACEUTICALS [Suspect]
     Indication: ARRHYTHMIA
     Dosage: 250 MCG 1/DAY IN A.M. ORAL SEVERAL YEARS
     Route: 048

REACTIONS (7)
  - ASTHENIA [None]
  - BALANCE DISORDER [None]
  - BEDRIDDEN [None]
  - FALL [None]
  - GENERAL PHYSICAL HEALTH DETERIORATION [None]
  - NECK INJURY [None]
  - SUDDEN DEATH [None]
